FAERS Safety Report 20577883 (Version 1)
Quarter: 2022Q1

REPORT INFORMATION
  Report Type: Spontaneous
  Country: US (occurrence: None)
  Receive Date: 20220310
  Receipt Date: 20220310
  Transmission Date: 20220423
  Serious: Yes (Hospitalization)
  Sender: FDA-Public Use
  Company Number: None

PATIENT
  Age: 62 Year
  Sex: Male
  Weight: 96 kg

DRUGS (2)
  1. CLOPIDOGREL BISULFATE [Suspect]
     Active Substance: CLOPIDOGREL BISULFATE
     Indication: Cardiac operation
     Dosage: 75 MG EVERY DAY PO?81 MG EVERY DAY PO
     Route: 048
     Dates: start: 20220127
  2. CLOPIDOGREL BISULFATE [Suspect]
     Active Substance: CLOPIDOGREL BISULFATE
     Indication: Vascular operation
     Dosage: FREQUENCY : DAILY;?
     Route: 048
     Dates: start: 20220127

REACTIONS (7)
  - Melaena [None]
  - Erosive oesophagitis [None]
  - Chest pain [None]
  - Anaemia [None]
  - Gastrointestinal angiectasia [None]
  - Haemorrhage [None]
  - Packed red blood cell transfusion [None]

NARRATIVE: CASE EVENT DATE: 20220225
